FAERS Safety Report 4361906-5 (Version None)
Quarter: 2004Q2

REPORT INFORMATION
  Report Type: 
  Country: None (occurrence: None)
  Receive Date: 20040521
  Receipt Date: 20031020
  Transmission Date: 20050107
  Serious: No
  Sender: FDA-Public Use
  Company Number: US-GLAXOSMITHKLINE-A0431123A

PATIENT
  Age: 52 Year
  Sex: Female

DRUGS (3)
  1. THORAZINE [Suspect]
     Route: 048
     Dates: end: 20030424
  2. WELLBUTRIN [Concomitant]
     Indication: DEPRESSION
     Dosage: 150MG TWICE PER DAY
     Route: 048
  3. NEURONTIN [Concomitant]
     Route: 048

REACTIONS (4)
  - ARTHRALGIA [None]
  - CARPAL TUNNEL SYNDROME [None]
  - PAIN IN EXTREMITY [None]
  - TARDIVE DYSKINESIA [None]
